FAERS Safety Report 11621517 (Version 1)
Quarter: 2015Q4

REPORT INFORMATION
  Report Type: Spontaneous
  Country: US (occurrence: US)
  Receive Date: 20151013
  Receipt Date: 20151013
  Transmission Date: 20160304
  Serious: Yes (Hospitalization)
  Sender: FDA-Public Use
  Company Number: US-ROCHE-1644598

PATIENT
  Age: 48 Year
  Sex: Male
  Weight: 79.45 kg

DRUGS (1)
  1. ESBRIET [Suspect]
     Active Substance: PIRFENIDONE
     Indication: PRODUCT USED FOR UNKNOWN INDICATION
     Dosage: TOTAL- 2403 MG DAILY PO TAKE 3 CAPSULES BY MOUTH
     Route: 048
     Dates: start: 20150217

REACTIONS (2)
  - Pneumothorax [Unknown]
  - Oxygen saturation decreased [Unknown]

NARRATIVE: CASE EVENT DATE: 201510
